FAERS Safety Report 14957751 (Version 1)
Quarter: 2018Q2

REPORT INFORMATION
  Report Type: Spontaneous
  Country: US (occurrence: US)
  Receive Date: 20180531
  Receipt Date: 20180531
  Transmission Date: 20180711
  Serious: Yes (Other)
  Sender: FDA-Public Use
  Company Number: US-SA-2017SA266481

PATIENT
  Age: 38 Year
  Sex: Female
  Weight: 53.52 kg

DRUGS (9)
  1. TAXOTERE [Suspect]
     Active Substance: DOCETAXEL
     Indication: BREAST CANCER FEMALE
     Dosage: 110 MG,Q3W
     Route: 051
     Dates: start: 20111026, end: 20111026
  2. ZOFRAN [ONDANSETRON HYDROCHLORIDE] [Concomitant]
  3. HERCEPTIN [Concomitant]
     Active Substance: TRASTUZUMAB
  4. BENADRYL 24 D [Concomitant]
     Active Substance: LORATADINE\PSEUDOEPHEDRINE SULFATE
  5. TAXOTERE [Suspect]
     Active Substance: DOCETAXEL
     Dosage: 110 MG, Q3W
     Route: 051
     Dates: start: 20120205, end: 20120205
  6. DECADRON [Concomitant]
     Active Substance: DEXAMETHASONE
  7. PERCOCET [OXYCODONE HYDROCHLORIDE;OXYCODONE TEREPHTHALATE;PARACETAMOL] [Concomitant]
  8. PARAPLATIN [Concomitant]
     Active Substance: CARBOPLATIN
  9. TYLENOL 8HR [Concomitant]
     Active Substance: ACETAMINOPHEN
     Dosage: UNK

REACTIONS (1)
  - Alopecia [Not Recovered/Not Resolved]

NARRATIVE: CASE EVENT DATE: 201112
